FAERS Safety Report 6826088-6 (Version None)
Quarter: 2010Q3

REPORT INFORMATION
  Report Type: 
  Country: None (occurrence: None)
  Receive Date: 20100709
  Receipt Date: 20100608
  Transmission Date: 20110219
  Serious: No
  Sender: FDA-Public Use
  Company Number: US-BAYER-201016691BCC

PATIENT
  Age: 85 Year
  Sex: Female
  Weight: 57 kg

DRUGS (7)
  1. ALEVE (CAPLET) [Suspect]
     Indication: ARTHRALGIA
     Dosage: TOTAL DAILY DOSE: 220 MG  UNIT DOSE: 220 MG
     Route: 048
     Dates: start: 20100501
  2. FOSAMAX [Concomitant]
     Dosage: TOTAL DAILY DOSE: 1 DF  UNIT DOSE: 1 DF
  3. METOPROLOL [Concomitant]
     Dosage: TOTAL DAILY DOSE: 1 DF  UNIT DOSE: 1 DF
  4. RAMIPRIL [Concomitant]
     Dosage: TOTAL DAILY DOSE: 1 DF  UNIT DOSE: 1 DF
  5. PRAVASTATIN SODIUM [Concomitant]
     Dosage: TOTAL DAILY DOSE: 4 MG  UNIT DOSE: 4 MG
  6. PREVACID [Concomitant]
     Dosage: AS USED: 1/2 DF
  7. CALCIUM SUPPLEMENT [Concomitant]

REACTIONS (1)
  - ARTHRALGIA [None]
